FAERS Safety Report 9969686 (Version 1)
Quarter: 2014Q1

REPORT INFORMATION
  Report Type: Spontaneous
  Country: US (occurrence: None)
  Receive Date: 20140304
  Receipt Date: 20140304
  Transmission Date: 20141002
  Serious: No
  Sender: FDA-Public Use
  Company Number: None

PATIENT
  Age: 62 Year
  Sex: Female
  Weight: 61.24 kg

DRUGS (1)
  1. MIRVASO 0.33% GEL [Suspect]
     Indication: FLUSHING
     Dosage: 5 DROPS ONCE DAILY APPLIED TO A SURFACE, USUALLY THE SKIN
     Route: 061
     Dates: start: 20140222, end: 20140226

REACTIONS (3)
  - Flushing [None]
  - Feeling hot [None]
  - Condition aggravated [None]
